FAERS Safety Report 15790336 (Version 1)
Quarter: 2019Q1

REPORT INFORMATION
  Report Type: Spontaneous
  Country: US (occurrence: US)
  Receive Date: 20190104
  Receipt Date: 20190104
  Transmission Date: 20190417
  Serious: No
  Sender: FDA-Public Use
  Company Number: US-SA-2019SA000399

PATIENT
  Sex: Female

DRUGS (1)
  1. ICY HOT MEDICATED NO MESS APPLICATOR [Suspect]
     Active Substance: MENTHOL
     Indication: PAIN
     Dosage: UNK
     Dates: start: 20181226

REACTIONS (6)
  - Blister [Unknown]
  - Erythema [Unknown]
  - Burning sensation [Unknown]
  - Pain [Unknown]
  - Feeling hot [Unknown]
  - Skin discolouration [Unknown]
